FAERS Safety Report 5076956-3 (Version None)
Quarter: 2006Q3

REPORT INFORMATION
  Report Type: 
  Country: None (occurrence: None)
  Receive Date: 20060810
  Receipt Date: 20060419
  Transmission Date: 20061208
  Serious: Yes (Other)
  Sender: FDA-Public Use
  Company Number: US-GLAXOSMITHKLINE-A0602731A

PATIENT
  Age: 15 Year
  Sex: Female

DRUGS (1)
  1. PAXIL [Suspect]
     Indication: ANOREXIA
     Dosage: 40MG PER DAY
     Route: 048
     Dates: start: 20000131, end: 20000901

REACTIONS (23)
  - ACUTE RESPIRATORY DISTRESS SYNDROME [None]
  - ANAEMIA [None]
  - BINGE EATING [None]
  - BULIMIA NERVOSA [None]
  - BURNS SECOND DEGREE [None]
  - BURNS THIRD DEGREE [None]
  - DEEP VEIN THROMBOSIS [None]
  - DRUG HYPERSENSITIVITY [None]
  - DYSPNOEA [None]
  - EMOTIONAL DISORDER [None]
  - ENTEROBACTER PNEUMONIA [None]
  - FLASHBACK [None]
  - FUNGAEMIA [None]
  - GASTROENTERITIS STAPHYLOCOCCAL [None]
  - INJURY [None]
  - MEMORY IMPAIRMENT [None]
  - PNEUMOTHORAX [None]
  - PSEUDOMONAL BACTERAEMIA [None]
  - SKIN GRAFT [None]
  - STAPHYLOCOCCAL SEPSIS [None]
  - SUICIDAL IDEATION [None]
  - SUICIDE ATTEMPT [None]
  - THERMAL BURN [None]
